FAERS Safety Report 9380425 (Version 1)
Quarter: 2013Q2

REPORT INFORMATION
  Report Type: Spontaneous
  Country: US (occurrence: None)
  Receive Date: 20130628
  Receipt Date: 20130628
  Transmission Date: 20140414
  Serious: Yes (Hospitalization, Other)
  Sender: FDA-Public Use
  Company Number: 148820

PATIENT
  Age: 52 Year
  Sex: Male
  Weight: 89 kg

DRUGS (1)
  1. ETOPOSIDE [Suspect]
     Indication: SMALL CELL LUNG CANCER
     Route: 042
     Dates: start: 20101230

REACTIONS (7)
  - Eye disorder [None]
  - Tunnel vision [None]
  - Hyponatraemia [None]
  - Hypertension [None]
  - Posterior reversible encephalopathy syndrome [None]
  - Hyperglycaemia [None]
  - Sinus bradycardia [None]
